FAERS Safety Report 8344507-3 (Version None)
Quarter: 2012Q2

REPORT INFORMATION
  Report Type: 
  Country: None (occurrence: None)
  Receive Date: 20120508
  Receipt Date: 20120502
  Transmission Date: 20120825
  Serious: Yes (Hospitalization)
  Sender: FDA-Public Use
  Company Number: US-PFIZER INC-2012108177

PATIENT
  Sex: Male
  Weight: 86.17 kg

DRUGS (14)
  1. CALCIUM [Concomitant]
     Dosage: 600 MG, ONCE A DAY
  2. TRICOR [Concomitant]
     Dosage: 145 MG, UNK
  3. ACETAMINOPHEN [Concomitant]
     Dosage: 325 MG, AS NEEDED
  4. ACETYLSALICYLIC ACID [Concomitant]
     Dosage: 81 MG, 1X/DAY
  5. FINASTERIDE [Concomitant]
     Dosage: 5 MG, 1X/DAY
  6. MAGNESIUM [Concomitant]
     Dosage: 400 MG, 2X/DAY
  7. LIPITOR [Suspect]
     Indication: BLOOD CHOLESTEROL INCREASED
     Dosage: 20 MG, ONCE A DAY
     Route: 048
     Dates: start: 20120401, end: 20120501
  8. PLAVIX [Concomitant]
     Dosage: 75 MG, 1X/DAY
  9. CADUET [Suspect]
     Indication: BLOOD PRESSURE
  10. TAMSULOSIN [Concomitant]
     Dosage: 0.4 MG, 1X/DAY
  11. COREG [Concomitant]
     Dosage: 12.5 MG, 2X/DAY
  12. OMEPRAZOLE [Concomitant]
     Dosage: 20 MG, UNK
  13. DIOVAN HCT [Concomitant]
     Dosage: 320 MG/12.5 MG, ONCE A DAY
  14. CADUET [Suspect]
     Indication: BLOOD CHOLESTEROL INCREASED
     Dosage: AMLODIPINE BESILATE 5 MG/ATORVASTATIN CALCIUM 20 MG, ONCE A DAY
     Route: 048
     Dates: start: 20060101, end: 20120401

REACTIONS (6)
  - DIZZINESS [None]
  - BLOOD MAGNESIUM DECREASED [None]
  - OEDEMA PERIPHERAL [None]
  - BLOOD POTASSIUM DECREASED [None]
  - SENSATION OF HEAVINESS [None]
  - PAIN IN EXTREMITY [None]
